FAERS Safety Report 7704086-8 (Version None)
Quarter: 2011Q3

REPORT INFORMATION
  Report Type: 
  Country: None (occurrence: None)
  Receive Date: 20110818
  Receipt Date: 20110803
  Transmission Date: 20111222
  Serious: Yes (Other)
  Sender: FDA-Public Use
  Company Number: FK201101582

PATIENT
  Sex: Male

DRUGS (2)
  1. CYTARABINE [Suspect]
     Indication: ACUTE MYELOID LEUKAEMIA
     Dosage: 100 MG/M2, FOR 7 DAYS, INTRAVENOUS
     Route: 042
  2. DAUNORUBICIN HCL [Suspect]
     Indication: ACUTE MYELOID LEUKAEMIA
     Dosage: 40 MG/M2, FOR 3-5 DAYS, INTRAVENOUS
     Route: 042

REACTIONS (1)
  - FEBRILE NEUTROPENIA [None]
